FAERS Safety Report 20587680 (Version 1)
Quarter: 2022Q1

REPORT INFORMATION
  Report Type: Spontaneous
  Country: LV (occurrence: LV)
  Receive Date: 20220314
  Receipt Date: 20220314
  Transmission Date: 20220423
  Serious: Yes (Hospitalization, Other)
  Sender: FDA-Public Use
  Company Number: None

PATIENT
  Age: 69 Year
  Sex: Female

DRUGS (2)
  1. LETROZOLE [Suspect]
     Active Substance: LETROZOLE
     Indication: Breast cancer metastatic
     Dosage: STRENGTH 2.5 MG
     Route: 048
     Dates: start: 20211015, end: 20220118
  2. RIBOCICLIB [Suspect]
     Active Substance: RIBOCICLIB
     Indication: Breast cancer metastatic
     Dosage: 600 MG PER DAY FOR 21 DAYS, THEN 7 DAYS NOT TAKING THE MEDICINE
     Route: 048
     Dates: start: 20211015, end: 20220118

REACTIONS (8)
  - Skin exfoliation [Recovering/Resolving]
  - Pyrexia [Recovering/Resolving]
  - Mouth injury [Recovering/Resolving]
  - Mucosal erosion [Recovering/Resolving]
  - Skin lesion [Recovering/Resolving]
  - Eye disorder [Recovering/Resolving]
  - Skin erosion [Recovering/Resolving]
  - Genital erosion [Recovering/Resolving]

NARRATIVE: CASE EVENT DATE: 20211201
